FAERS Safety Report 23124719 (Version 1)
Quarter: 2023Q4

REPORT INFORMATION
  Report Type: Spontaneous
  Country: US (occurrence: None)
  Receive Date: 20231029
  Receipt Date: 20231029
  Transmission Date: 20240110
  Serious: Yes (Disabling)
  Sender: FDA-Public Use
  Company Number: None

PATIENT
  Age: 56 Year
  Sex: Female
  Weight: 49.95 kg

DRUGS (2)
  1. TYRVAYA [Suspect]
     Active Substance: VARENICLINE TARTRATE
     Indication: Dry eye
     Dosage: FREQUENCY : TWICE A DAY;?OTHER ROUTE : NASAL SPRAY TO INSIDE OF NOSE;?
     Route: 050
     Dates: start: 20230824, end: 20231016
  2. AJOVY [Concomitant]
     Active Substance: FREMANEZUMAB-VFRM

REACTIONS (4)
  - Gastrointestinal disorder [None]
  - Nausea [None]
  - Diarrhoea [None]
  - Abdominal pain [None]

NARRATIVE: CASE EVENT DATE: 20230824
